FAERS Safety Report 9860317 (Version 2)
Quarter: 2014Q2

REPORT INFORMATION
  Report Type: Spontaneous
  Country: US (occurrence: US)
  Receive Date: 20140201
  Receipt Date: 20140409
  Transmission Date: 20141212
  Serious: No
  Sender: FDA-Public Use
  Company Number: US-009507513-1401USA011398

PATIENT
  Age: 76 Year
  Sex: Female
  Weight: 43.84 kg

DRUGS (6)
  1. MIRALAX [Suspect]
     Indication: CONSTIPATION
     Dosage: 17 G, QD
     Route: 048
     Dates: start: 201312, end: 2014
  2. MIRALAX [Suspect]
     Dosage: UNK UNK, PRN
     Route: 048
  3. GLYCOPYRROLATE [Concomitant]
     Indication: AMYOTROPHIC LATERAL SCLEROSIS
     Dosage: UNK, UNKNOWN
  4. AMITRIPTYLINE HYDROCHLORIDE [Concomitant]
     Indication: PRODUCT USED FOR UNKNOWN INDICATION
     Dosage: UNK, UNKNOWN
  5. FLUOXETINE [Concomitant]
     Indication: PRODUCT USED FOR UNKNOWN INDICATION
     Dosage: UNK, UNKNOWN
  6. DIOCTYL [Concomitant]
     Indication: PRODUCT USED FOR UNKNOWN INDICATION
     Dosage: UNK, UNKNOWN

REACTIONS (5)
  - Diarrhoea [Recovered/Resolved]
  - Constipation [Unknown]
  - Overdose [Unknown]
  - Underdose [Unknown]
  - Incorrect drug administration duration [Unknown]
